FAERS Safety Report 16013051 (Version 3)
Quarter: 2019Q1

REPORT INFORMATION
  Report Type: Spontaneous
  Country: ES (occurrence: ES)
  Receive Date: 20190227
  Receipt Date: 20190319
  Transmission Date: 20190418
  Serious: Yes (Other)
  Sender: FDA-Public Use
  Company Number: ES-MYLANLABS-M-EU-2010120288

PATIENT
  Age: 27 Year
  Sex: Male

DRUGS (4)
  1. DIAZEPAM. [Concomitant]
     Active Substance: DIAZEPAM
     Indication: PRODUCT USED FOR UNKNOWN INDICATION
     Dosage: UNK
  2. ZOLPIDEM [Suspect]
     Active Substance: ZOLPIDEM\ZOLPIDEM TARTRATE
     Indication: INSOMNIA
     Dosage: 10 MILLIGRAM, QD (10 MG AT BED-TIME)
     Route: 065
  3. LORMETAZEPAM [Concomitant]
     Active Substance: LORMETAZEPAM
     Indication: PRODUCT USED FOR UNKNOWN INDICATION
     Dosage: UNK
  4. CLONAZEPAM. [Concomitant]
     Active Substance: CLONAZEPAM
     Indication: PRODUCT USED FOR UNKNOWN INDICATION
     Dosage: UNK

REACTIONS (9)
  - Accidental exposure to product [Unknown]
  - Amnesia [Recovered/Resolved]
  - Weight increased [Recovered/Resolved]
  - Injury [Unknown]
  - Sleep-related eating disorder [Recovering/Resolving]
  - Parasomnia [Recovered/Resolved]
  - Anterograde amnesia [Recovering/Resolving]
  - Abnormal sleep-related event [Recovering/Resolving]
  - Abnormal behaviour [Recovering/Resolving]
